FAERS Safety Report 5368405-2 (Version None)
Quarter: 2007Q2

REPORT INFORMATION
  Report Type: 
  Country: None (occurrence: None)
  Receive Date: 20070625
  Receipt Date: 20070622
  Transmission Date: 20071010
  Serious: Yes (Hospitalization)
  Sender: FDA-Public Use
  Company Number: FR-BAYER-200611072BFR

PATIENT
  Sex: Female

DRUGS (1)
  1. ACARBOSE [Suspect]
     Indication: DIABETES MELLITUS

REACTIONS (2)
  - GASTROINTESTINAL DISORDER [None]
  - INTESTINAL OBSTRUCTION [None]
